FAERS Safety Report 26191760 (Version 1)
Quarter: 2025Q4

REPORT INFORMATION
  Report Type: Spontaneous
  Country: JP (occurrence: JP)
  Receive Date: 20251223
  Receipt Date: 20251223
  Transmission Date: 20260117
  Serious: Yes (Other)
  Sender: OTSUKA
  Company Number: JP-MMM-Otsuka-PZXGH0AM

PATIENT
  Age: 9 Decade
  Sex: Female

DRUGS (5)
  1. REXULTI [Suspect]
     Active Substance: BREXPIPRAZOLE
     Indication: Dementia Alzheimer^s type
     Dosage: 0.5 MG, DAILY
     Route: 061
  2. REXULTI [Suspect]
     Active Substance: BREXPIPRAZOLE
     Indication: Irritability
  3. REXULTI [Suspect]
     Active Substance: BREXPIPRAZOLE
     Indication: Agitation
  4. REXULTI [Suspect]
     Active Substance: BREXPIPRAZOLE
     Indication: Aggression
  5. REXULTI [Suspect]
     Active Substance: BREXPIPRAZOLE
     Indication: Psychomotor hyperactivity

REACTIONS (1)
  - Hypertension [Unknown]
